FAERS Safety Report 9985621 (Version 4)
Quarter: 2014Q2

REPORT INFORMATION
  Report Type: Spontaneous
  Country: US (occurrence: US)
  Receive Date: 20140307
  Receipt Date: 20140418
  Transmission Date: 20141212
  Serious: Yes (Other)
  Sender: FDA-Public Use
  Company Number: CHPA2014US003575

PATIENT
  Age: 71 Year
  Sex: Male

DRUGS (15)
  1. THERAFLU NIGHTTIME SEVERE COLD + COUGH [Suspect]
     Indication: NASAL CONGESTION
     Dosage: 1 DF, PRN
     Route: 048
     Dates: start: 2010
  2. THERAFLU NIGHTTIME SEVERE COLD + COUGH [Suspect]
     Indication: THROAT IRRITATION
     Dosage: 1 UNK, UNK
     Route: 048
  3. THERAFLU NIGHTTIME SEVERE COLD + COUGH [Suspect]
     Indication: UPPER-AIRWAY COUGH SYNDROME
  4. THERAFLU NIGHTTIME SEVERE COLD + COUGH [Suspect]
     Indication: OFF LABEL USE
  5. THERAFLU FLU AND SORE THROAT [Suspect]
     Indication: NASAL CONGESTION
     Dosage: 1 DF, PRN
     Route: 048
  6. THERAFLU FLU AND SORE THROAT [Suspect]
     Indication: THROAT IRRITATION
  7. THERAFLU FLU AND SORE THROAT [Suspect]
     Indication: UPPER-AIRWAY COUGH SYNDROME
  8. THERAFLU FLU AND SORE THROAT [Suspect]
     Indication: OFF LABEL USE
  9. THERAFLU WARMING RELIEF COLD + CHEST CONG [Suspect]
     Indication: NASAL CONGESTION
     Dosage: UNK, PRN
     Route: 048
  10. THERAFLU WARMING RELIEF COLD + CHEST CONG [Suspect]
     Indication: THROAT IRRITATION
  11. THERAFLU WARMING RELIEF COLD + CHEST CONG [Suspect]
     Indication: UPPER-AIRWAY COUGH SYNDROME
  12. THERAFLU WARMING RELIEF COLD + CHEST CONG [Suspect]
     Indication: OFF LABEL USE
  13. ASPIRIN [Concomitant]
     Dosage: UNK
     Route: 048
  14. LIPITOR [Concomitant]
     Indication: BLOOD CHOLESTEROL INCREASED
  15. CRESTOR [Concomitant]
     Indication: BLOOD CHOLESTEROL INCREASED

REACTIONS (3)
  - Prostate cancer [Recovered/Resolved]
  - Bacterial infection [Not Recovered/Not Resolved]
  - Expired product administered [Unknown]
